FAERS Safety Report 14711448 (Version 5)
Quarter: 2018Q2

REPORT INFORMATION
  Report Type: Spontaneous
  Country: BE (occurrence: BE)
  Receive Date: 20180403
  Receipt Date: 20180629
  Transmission Date: 20180711
  Serious: Yes (Death, Other)
  Sender: FDA-Public Use
  Company Number: BE-PFIZER INC-2018125147

PATIENT
  Age: 29 Year
  Sex: Male
  Weight: 80 kg

DRUGS (10)
  1. MEDROL [Concomitant]
     Active Substance: METHYLPREDNISOLONE
     Dosage: 64 MG, 1X/DAY
     Route: 048
  2. CRESEMBA [Suspect]
     Active Substance: ISAVUCONAZONIUM SULFATE
     Indication: MUCORMYCOSIS
  3. ATARAX [Concomitant]
     Active Substance: HYDROXYZINE HYDROCHLORIDE
     Dosage: UNK, 1X/DAY
     Route: 048
  4. CALCIUM [Concomitant]
     Active Substance: CALCIUM
     Dosage: 1 G, 1X/DAY
     Route: 042
  5. CRESEMBA [Suspect]
     Active Substance: ISAVUCONAZONIUM SULFATE
     Indication: ASPERGILLUS INFECTION
     Dosage: 200 MG, 3X/DAY
     Route: 042
     Dates: start: 20180322, end: 20180323
  6. ATROVENT [Concomitant]
     Active Substance: IPRATROPIUM BROMIDE
     Route: 055
  7. VFEND [Suspect]
     Active Substance: VORICONAZOLE
     Indication: MUCORMYCOSIS
     Dosage: 300 MG, 2X/DAY
     Route: 042
     Dates: start: 20180321, end: 20180322
  8. MEROPENEM. [Concomitant]
     Active Substance: MEROPENEM
     Dosage: 1 G, 3X/DAY
     Route: 042
  9. VFEND [Suspect]
     Active Substance: VORICONAZOLE
     Indication: ASPERGILLUS INFECTION
  10. CYMEVENE /00784201/ [Concomitant]
     Active Substance: GANCICLOVIR
     Dosage: 250 MG, UNK
     Route: 042

REACTIONS (5)
  - Hepatic failure [Unknown]
  - Soft tissue necrosis [Unknown]
  - Cardiac failure [Unknown]
  - Respiratory failure [Fatal]
  - Sepsis [Unknown]

NARRATIVE: CASE EVENT DATE: 20180323
